FAERS Safety Report 6361698 (Version 2)
Quarter: 2012Q4

REPORT INFORMATION
  Report Type: 
  Country: US (occurrence: None)
  Receive Date: 20070712
  Receipt Date: 20120904
  Transmission Date: 20130627
  Serious: Yes (Hospitalization)
  Sender: FDA-Public Use
  Company Number: FABR-12059

PATIENT
  Age: 34 Year
  Sex: Male
  Weight: 52 kg

DRUGS (5)
  1. FABRAZYME [Suspect]
     Indication: FABRY^S DISEASE
     Dosage: 55 MG Q2WKS IV
     Route: 042
     Dates: start: 20070615
  2. FABRAZYME [Suspect]
     Indication: FABRY^S DISEASE
     Dosage: 55 MG Q2WKS IV
     Route: 042
     Dates: start: 20070615
  3. FABRAZYME [Suspect]
     Indication: FABRY^S DISEASE
     Route: 042
     Dates: start: 20120612
  4. FABRAZYME [Suspect]
     Indication: FABRY^S DISEASE
     Route: 042
     Dates: start: 20120612
  5. FABRAZYME [Suspect]

REACTIONS (3)
  - Renal failure [None]
  - Condition aggravated [None]
  - Renal transplant [None]
